FAERS Safety Report 23200996 (Version 1)
Quarter: 2023Q4

REPORT INFORMATION
  Report Type: Spontaneous
  Country: SE (occurrence: SE)
  Receive Date: 20231118
  Receipt Date: 20231118
  Transmission Date: 20240109
  Serious: Yes (Other)
  Sender: FDA-Public Use
  Company Number: None

PATIENT
  Age: 21 Year
  Sex: Male

DRUGS (4)
  1. OLANZAPINE [Suspect]
     Active Substance: OLANZAPINE
     Indication: Major depression
     Dosage: THERAPY END DATE : NASK
     Dates: start: 20231018
  2. OLANZAPINE [Suspect]
     Active Substance: OLANZAPINE
     Indication: Hallucination, auditory
  3. OLANZAPINE [Suspect]
     Active Substance: OLANZAPINE
     Indication: Suicidal ideation
  4. SERTRALINE [Concomitant]
     Active Substance: SERTRALINE HYDROCHLORIDE
     Indication: Product used for unknown indication
     Dosage: FOR ACTIVE INGREDIENT SERTRALINE HYDROCHLORIDE THE STRENGTH IS 27,975 MILLIGRAMS. FOR ACTIVE INGREDI
     Dates: start: 20231018

REACTIONS (2)
  - Hallucination [Recovered/Resolved]
  - Myalgia [Recovered/Resolved]

NARRATIVE: CASE EVENT DATE: 20231001
